FAERS Safety Report 20109839 (Version 3)
Quarter: 2025Q3

REPORT INFORMATION
  Report Type: Spontaneous
  Country: EU (occurrence: EU)
  Receive Date: 20211124
  Receipt Date: 20250710
  Transmission Date: 20251020
  Serious: Yes (Hospitalization, Other)
  Sender: PFIZER
  Company Number: EU-AMAROX PHARMA GMBH-AMR2021NL01853

PATIENT
  Age: 80 Year
  Sex: Male

DRUGS (7)
  1. PANTOPRAZOLE [Suspect]
     Active Substance: PANTOPRAZOLE
  2. OMEPRAZOLE [Suspect]
     Active Substance: OMEPRAZOLE
     Dosage: UNK , QD
  3. FUROSEMIDE [Concomitant]
     Active Substance: FUROSEMIDE
     Dosage: UNK UNK, QD
  4. AMIODARONE [Concomitant]
     Active Substance: AMIODARONE
     Indication: Atrial fibrillation
     Dosage: UNK, QD
  5. ACENOCOUMAROL [Concomitant]
     Active Substance: ACENOCOUMAROL
  6. NEBIVOLOL [Concomitant]
     Active Substance: NEBIVOLOL
     Indication: Cardiac failure
     Dosage: UNK , QD
  7. LISINOPRIL [Concomitant]
     Active Substance: LISINOPRIL
     Indication: Cardiac failure

REACTIONS (4)
  - Renal failure [Recovering/Resolving]
  - Toxicity to various agents [Recovering/Resolving]
  - Renal impairment [Unknown]
  - Nephropathy toxic [Recovering/Resolving]
